FAERS Safety Report 16925017 (Version 1)
Quarter: 2019Q4

REPORT INFORMATION
  Report Type: Spontaneous
  Country: US (occurrence: US)
  Receive Date: 20190823
  Receipt Date: 20190823
  Transmission Date: 20200122
  Serious: Yes (Hospitalization)
  Sender: FDA-Public Use
  Company Number: None

PATIENT
  Sex: Female

DRUGS (6)
  1. STELARA [Suspect]
     Active Substance: USTEKINUMAB
     Indication: CROHN^S DISEASE
     Dosage: ?          OTHER FREQUENCY:EVERY 8 WEEKS;?
     Route: 058
     Dates: start: 20190117
  2. MUPIROCIN. [Concomitant]
     Active Substance: MUPIROCIN
  3. SMZ/TMP [Concomitant]
     Active Substance: SULFAMETHOXAZOLE\TRIMETHOPRIM
  4. DICLOFENAC [Concomitant]
     Active Substance: DICLOFENAC
  5. METHOCARBAM [Concomitant]
     Active Substance: METHOCARBAMOL
  6. HYDROCORT OIN [Concomitant]

REACTIONS (5)
  - Diarrhoea [None]
  - Headache [None]
  - Staphylococcal infection [None]
  - Localised infection [None]
  - Back pain [None]
